FAERS Safety Report 7402415-6 (Version None)
Quarter: 2011Q1

REPORT INFORMATION
  Report Type: 
  Country: None (occurrence: None)
  Receive Date: 20110330
  Receipt Date: 20110315
  Transmission Date: 20110831
  Serious: Yes (Other)
  Sender: FDA-Public Use
  Company Number: DSJ-2011-05464

PATIENT
  Age: 7 Decade
  Sex: Female

DRUGS (5)
  1. LEVOTHYROXINE SODIUM (LEVOTHYROXINE SODIUM)(LEVOTHYROXINE SODIUM) [Concomitant]
  2. BENICAR [Suspect]
     Indication: HYPERTENSION
     Dosage: 40 MG (40 MG, 1 IN 1 D),PER ORAL, 20 MG (20 MG,I IN 1 D), PER ORAL
     Route: 048
     Dates: start: 20100401, end: 20101201
  3. BENICAR [Suspect]
     Indication: HYPERTENSION
     Dosage: 40 MG (40 MG, 1 IN 1 D),PER ORAL, 20 MG (20 MG,I IN 1 D), PER ORAL
     Route: 048
     Dates: start: 20110301
  4. METFORMIN HCL [Concomitant]
  5. GLIMEPIRIDE(GLIMEPIRIDE)(GLIMEPIRIDE) [Concomitant]

REACTIONS (3)
  - DRUG INEFFECTIVE [None]
  - BLOOD PRESSURE INCREASED [None]
  - HYPOGLYCAEMIA [None]
